FAERS Safety Report 21445288 (Version 1)
Quarter: 2022Q4

REPORT INFORMATION
  Report Type: Spontaneous
  Country: US (occurrence: None)
  Receive Date: 20221010
  Receipt Date: 20221010
  Transmission Date: 20230113
  Serious: No
  Sender: FDA-Public Use
  Company Number: None

PATIENT
  Age: 72 Year
  Sex: Female

DRUGS (2)
  1. TALTZ [Suspect]
     Active Substance: IXEKIZUMAB
     Indication: Psoriasis
     Dosage: OTHER FREQUENCY : WEEK 0;?INJECT 160MG (2 SYRINGES) SUBCUTANEOUSLY AT WEEK 0,?THEN 80MG (1 SYRINGE)
     Route: 058
     Dates: start: 202103
  2. TALTZ [Suspect]
     Active Substance: IXEKIZUMAB
     Dosage: OTHER FREQUENCY : WEEK 2;?
     Route: 058

REACTIONS (1)
  - Urinary tract infection [None]
